FAERS Safety Report 15055183 (Version 2)
Quarter: 2018Q2

REPORT INFORMATION
  Report Type: Report from Study
  Country: US (occurrence: US)
  Receive Date: 20180622
  Receipt Date: 20180628
  Transmission Date: 20180711
  Serious: Yes (Other)
  Sender: FDA-Public Use
  Company Number: US-GILEAD-2018-0346511

PATIENT
  Age: 54 Year
  Sex: Male

DRUGS (2)
  1. RANOLAZINE. [Suspect]
     Active Substance: RANOLAZINE
     Indication: CHEST PAIN
  2. RANOLAZINE. [Suspect]
     Active Substance: RANOLAZINE
     Indication: ARTERIOSCLEROSIS CORONARY ARTERY
     Dosage: 500 MG, BID
     Route: 048

REACTIONS (1)
  - Arteriosclerosis coronary artery [Unknown]

NARRATIVE: CASE EVENT DATE: 20180614
